FAERS Safety Report 5447013-9 (Version None)
Quarter: 2007Q3

REPORT INFORMATION
  Report Type: 
  Country: None (occurrence: None)
  Receive Date: 20070810
  Receipt Date: 20060427
  Transmission Date: 20080115
  Serious: Yes (Other)
  Sender: FDA-Public Use
  Company Number: PHEH2006US05250

PATIENT
  Age: 79 Year
  Sex: Male

DRUGS (18)
  1. VISUDYNE [Suspect]
     Indication: MACULAR DEGENERATION
     Dates: start: 20060406, end: 20060406
  2. LUPRON [Concomitant]
  3. PROCRIT [Concomitant]
  4. CASODEX [Concomitant]
  5. PRILOSEC [Concomitant]
  6. GLIPIZIDE [Concomitant]
  7. ACTOS [Concomitant]
  8. VYTORIN [Concomitant]
  9. ALTACE [Concomitant]
  10. COZAAR [Concomitant]
  11. PLAVIX [Concomitant]
  12. TOPROL-XL [Concomitant]
  13. TRIAMTERENE AND HYDROCHLOROTHIAZIDE [Concomitant]
  14. CALTRATE [Concomitant]
  15. CENTRUM SILVER [Concomitant]
  16. VITAMIN D [Concomitant]
  17. IRON [Concomitant]
  18. QUININE [Concomitant]

REACTIONS (1)
  - BLOOD CREATININE INCREASED [None]
